FAERS Safety Report 7981240-1 (Version None)
Quarter: 2011Q4

REPORT INFORMATION
  Report Type: 
  Country: None (occurrence: None)
  Receive Date: 20111215
  Receipt Date: 20111213
  Transmission Date: 20120403
  Serious: No
  Sender: FDA-Public Use
  Company Number: US-PFIZER INC-2011276321

PATIENT
  Age: 64 Year
  Sex: Female
  Weight: 70.295 kg

DRUGS (1)
  1. IBUPROFEN (ADVIL) [Suspect]
     Indication: ANALGESIC THERAPY
     Dosage: 200 MG, UNK
     Route: 048
     Dates: end: 20111101

REACTIONS (1)
  - FAECES DISCOLOURED [None]
